FAERS Safety Report 7823742-4 (Version None)
Quarter: 2011Q4

REPORT INFORMATION
  Report Type: 
  Country: None (occurrence: None)
  Receive Date: 20111019
  Receipt Date: 20110913
  Transmission Date: 20120403
  Serious: Yes (Death, Hospitalization, Other)
  Sender: FDA-Public Use
  Company Number: SE-AMGEN-KDC404043

PATIENT
  Age: 79 Year
  Sex: Male
  Weight: 78.985 kg

DRUGS (14)
  1. BETAPRED [Concomitant]
     Dosage: 0.5 MG, UNK
  2. BLINDED PLACEBO [Suspect]
     Indication: CARDIAC FAILURE
     Dosage: UNK UNK, QMO
     Route: 058
     Dates: start: 20070327, end: 20080628
  3. OMEPRAZOLE [Concomitant]
     Dosage: 20 MG, UNK
  4. ASPIRIN [Concomitant]
     Dosage: 75 MG, UNK
  5. BEHEPAN [Concomitant]
     Dosage: 1 MG, UNK
  6. SALURES [Concomitant]
     Dosage: 2.5 MG, UNK
  7. MORPHINE [Concomitant]
  8. LACTULOSE [Concomitant]
  9. SIMVASTATIN [Concomitant]
     Dosage: 20 MG, UNK
  10. RAMIPRIL [Concomitant]
     Dosage: 5 MG, UNK
  11. AMLODIPINE [Concomitant]
     Dosage: 5 MG, UNK
  12. BLINDED DARBEPOETIN ALFA [Suspect]
     Indication: CARDIAC FAILURE
     Dosage: UNK UNK, QMO
     Route: 058
     Dates: start: 20070327, end: 20080628
  13. METOPROLOL TARTRATE [Concomitant]
     Dosage: 50 MG, UNK
     Dates: start: 20070327, end: 20080825
  14. PRIMPERAN TAB [Concomitant]
     Route: 042

REACTIONS (2)
  - SMALL CELL LUNG CANCER STAGE UNSPECIFIED [None]
  - METASTASES TO LIVER [None]
